FAERS Safety Report 20829232 (Version 1)
Quarter: 2022Q2

REPORT INFORMATION
  Report Type: Spontaneous
  Country: US (occurrence: US)
  Receive Date: 20220513
  Receipt Date: 20220513
  Transmission Date: 20220721
  Serious: No
  Sender: FDA-Public Use
  Company Number: US-SA-SAC20220511000306

PATIENT
  Age: 14 Year
  Sex: Female

DRUGS (5)
  1. DUPIXENT [Suspect]
     Active Substance: DUPILUMAB
     Indication: Dermatitis atopic
     Dosage: 300 MG, QOW
     Route: 058
  2. FLUTICASONE PROPIONATE [Suspect]
     Active Substance: FLUTICASONE PROPIONATE
     Dosage: 300 MG
  3. ALEVE [Concomitant]
     Active Substance: NAPROXEN SODIUM
  4. HYDROCORTISONE [Concomitant]
     Active Substance: HYDROCORTISONE
  5. CETAPHIL [CETYL ALCOHOL;TOCOPHERYL ACETATE] [Concomitant]

REACTIONS (1)
  - Dermatitis [Unknown]
